FAERS Safety Report 10070025 (Version 1)
Quarter: 2014Q2

REPORT INFORMATION
  Report Type: Spontaneous
  Country: US (occurrence: None)
  Receive Date: 20140409
  Receipt Date: 20140409
  Transmission Date: 20141212
  Serious: No
  Sender: FDA-Public Use
  Company Number: None

PATIENT
  Age: 65 Year
  Sex: Female
  Weight: 66.68 kg

DRUGS (1)
  1. LEUCOVORIN [Suspect]
     Indication: COLORECTAL CANCER
     Dosage: 400MG/M2 EVERY 14 DAYS INTRAVENOUS
     Route: 042
     Dates: start: 20140109, end: 20140109

REACTIONS (3)
  - Flushing [None]
  - Erythema [None]
  - Dyspnoea [None]
